FAERS Safety Report 6714158-2 (Version None)
Quarter: 2010Q2

REPORT INFORMATION
  Report Type: 
  Country: None (occurrence: None)
  Receive Date: 20100503
  Receipt Date: 20100426
  Transmission Date: 20101027
  Serious: Yes (Hospitalization, Disabling, Other)
  Sender: FDA-Public Use
  Company Number: GB-GDP-10407958

PATIENT
  Age: 19 Year
  Sex: Female

DRUGS (1)
  1. DOXYCYCLINE [Suspect]
     Indication: ACNE
     Dosage: (ORAL)
     Route: 048

REACTIONS (4)
  - FLUID INTAKE REDUCED [None]
  - HYPOPHAGIA [None]
  - OESOPHAGEAL PAIN [None]
  - OESOPHAGEAL ULCER [None]
